FAERS Safety Report 5351243-4 (Version None)
Quarter: 2007Q2

REPORT INFORMATION
  Report Type: 
  Country: None (occurrence: None)
  Receive Date: 20070608
  Receipt Date: 20070529
  Transmission Date: 20071010
  Serious: Yes (Hospitalization)
  Sender: FDA-Public Use
  Company Number: FR-PFIZER INC-2007044097

PATIENT
  Sex: Female

DRUGS (3)
  1. DALACINE [Suspect]
     Indication: INTESTINAL ISCHAEMIA
     Route: 048
     Dates: start: 20070105, end: 20070210
  2. BACTRIM [Interacting]
     Indication: INTESTINAL ISCHAEMIA
     Dosage: TEXT:UNIT DOSE 2 DOSE FORMS; TTD 6 DOSE FORMS-FREQ:FREQUENCY: TID
     Route: 048
     Dates: start: 20070105, end: 20070210
  3. CLOPIDOGREL [Interacting]
     Indication: INTESTINAL ISCHAEMIA
     Dosage: DAILY DOSE:20MG-FREQ:INTERVAL:EVERY DAY
     Route: 048
     Dates: start: 20070105, end: 20070210

REACTIONS (4)
  - ANAEMIA [None]
  - DRUG INTERACTION [None]
  - EPISTAXIS [None]
  - PROTHROMBIN LEVEL DECREASED [None]
